FAERS Safety Report 18285801 (Version 3)
Quarter: 2020Q4

REPORT INFORMATION
  Report Type: Report from Study
  Country: None (occurrence: US)
  Receive Date: 20200918
  Receipt Date: 20201113
  Transmission Date: 20210113
  Serious: Yes (Hospitalization)
  Sender: FDA-Public Use
  Company Number: US-ABBVIE-20K-163-3571852-00

PATIENT
  Sex: Male

DRUGS (3)
  1. PREDNISONE. [Suspect]
     Active Substance: PREDNISONE
     Indication: PRODUCT USED FOR UNKNOWN INDICATION
     Route: 065
  2. IMBRUVICA [Suspect]
     Active Substance: IBRUTINIB
     Indication: CHRONIC LYMPHOCYTIC LEUKAEMIA
     Route: 048
     Dates: start: 20200731
  3. IMBRUVICA [Suspect]
     Active Substance: IBRUTINIB
     Indication: CHRONIC LYMPHOCYTIC LEUKAEMIA
     Route: 048

REACTIONS (19)
  - Nocturia [Not Recovered/Not Resolved]
  - Feeling abnormal [Not Recovered/Not Resolved]
  - Contusion [Unknown]
  - Dizziness [Unknown]
  - Infusion [Unknown]
  - Apathy [Not Recovered/Not Resolved]
  - Blood count abnormal [Unknown]
  - Asthenia [Not Recovered/Not Resolved]
  - Dry mouth [Unknown]
  - White blood cell count increased [Unknown]
  - Poor quality sleep [Unknown]
  - Skin irritation [Recovering/Resolving]
  - Glossodynia [Not Recovered/Not Resolved]
  - Pain of skin [Recovering/Resolving]
  - Red blood cell count decreased [Unknown]
  - Haemorrhagic diathesis [Unknown]
  - Fatigue [Not Recovered/Not Resolved]
  - Haemorrhage [Recovered/Resolved]
  - Asthenia [Unknown]

NARRATIVE: CASE EVENT DATE: 2020
